FAERS Safety Report 6989702-0 (Version None)
Quarter: 2010Q3

REPORT INFORMATION
  Report Type: 
  Country: None (occurrence: None)
  Receive Date: 20100916
  Receipt Date: 20100913
  Transmission Date: 20110219
  Serious: Yes (Hospitalization)
  Sender: FDA-Public Use
  Company Number: US-MERCK-1009USA00019

PATIENT
  Age: 41 Year
  Sex: Male

DRUGS (10)
  1. ZOCOR [Suspect]
     Indication: BLOOD TRIGLYCERIDES INCREASED
     Route: 048
     Dates: start: 20100401, end: 20100527
  2. ZOCOR [Suspect]
     Route: 048
     Dates: start: 20090515
  3. ZOCOR [Suspect]
     Indication: BLOOD CHOLESTEROL INCREASED
     Route: 048
     Dates: start: 20100401, end: 20100527
  4. ZOCOR [Suspect]
     Route: 048
     Dates: start: 20090515
  5. METFORMIN [Concomitant]
     Route: 065
  6. SIMVASTATIN [Suspect]
     Indication: BLOOD TRIGLYCERIDES INCREASED
     Route: 065
     Dates: start: 20090824
  7. SIMVASTATIN [Suspect]
     Indication: BLOOD CHOLESTEROL INCREASED
     Route: 065
     Dates: start: 20090824
  8. TRILIPIX [Concomitant]
     Route: 065
     Dates: start: 20091228
  9. NIASPAN [Concomitant]
     Route: 065
     Dates: start: 20100426
  10. ZETIA [Concomitant]
     Route: 048
     Dates: start: 20090515

REACTIONS (5)
  - DIARRHOEA [None]
  - HEART RATE ABNORMAL [None]
  - MUSCLE SPASMS [None]
  - NAUSEA [None]
  - PALPITATIONS [None]
